FAERS Safety Report 9602125 (Version 2)
Quarter: 2013Q4

REPORT INFORMATION
  Report Type: Spontaneous
  Country: IT (occurrence: IT)
  Receive Date: 20131007
  Receipt Date: 20131122
  Transmission Date: 20140711
  Serious: Yes (Hospitalization)
  Sender: FDA-Public Use
  Company Number: IT-009507513-1309ITA014227

PATIENT
  Age: 39 Year
  Sex: Male

DRUGS (7)
  1. ISENTRESS [Suspect]
     Indication: HIV INFECTION
     Dosage: 800 MG, QD
     Route: 048
     Dates: start: 20130712, end: 20130817
  2. AZITHROMYCIN [Concomitant]
     Dosage: 500 MG, UNK
  3. PREZISTA [Concomitant]
     Dosage: 1200 MG, UNK
     Route: 048
  4. NORVIR [Concomitant]
     Dosage: 200 MG, UNK
     Route: 048
  5. ETAPIAM [Concomitant]
     Dosage: 1500 MG, UNK
  6. MYCOBUTIN [Concomitant]
     Dosage: UNK
  7. LEDERFOLIN (LEVOLEUCOVORIN CALCIUM) [Concomitant]
     Dosage: UNK

REACTIONS (4)
  - Autoimmune haemolytic anaemia [Recovering/Resolving]
  - Jaundice [Recovering/Resolving]
  - Pyrexia [Recovering/Resolving]
  - Rash maculo-papular [Recovering/Resolving]
